FAERS Safety Report 10507905 (Version 1)
Quarter: 2014Q4

REPORT INFORMATION
  Report Type: Spontaneous
  Country: BR (occurrence: BR)
  Receive Date: 20141009
  Receipt Date: 20141009
  Transmission Date: 20150528
  Serious: Yes (Death, Hospitalization, Other)
  Sender: FDA-Public Use
  Company Number: PHHY2014BR130686

PATIENT
  Age: 30 Year
  Sex: Male

DRUGS (7)
  1. GEMCITABINE [Suspect]
     Active Substance: GEMCITABINE\GEMCITABINE HYDROCHLORIDE
     Indication: TESTICULAR GERM CELL CANCER
     Dosage: 1000 MG/M2, ON DAYS 1, 8, AND 15 OF A 28-DAY CYCLE
  2. VINBLASTINE [Suspect]
     Active Substance: VINBLASTINE
     Indication: TESTICULAR GERM CELL CANCER
  3. ETOPOSIDE. [Suspect]
     Active Substance: ETOPOSIDE
     Indication: TESTICULAR GERM CELL CANCER
  4. PACLITAXEL. [Suspect]
     Active Substance: PACLITAXEL
     Indication: TESTICULAR GERM CELL CANCER
     Dosage: 100 MG/M2, ON DAY 1
  5. CISPLATIN. [Suspect]
     Active Substance: CISPLATIN
     Indication: TESTICULAR GERM CELL CANCER
  6. IFOSFAMIDE. [Suspect]
     Active Substance: IFOSFAMIDE
     Indication: TESTICULAR GERM CELL CANCER
  7. BLEOMYCIN [Suspect]
     Active Substance: BLEOMYCIN SULFATE
     Indication: TESTICULAR GERM CELL CANCER

REACTIONS (11)
  - Thrombotic microangiopathy [Unknown]
  - Renal injury [Unknown]
  - Testicular germ cell cancer [Unknown]
  - Cerebral haemorrhage [Fatal]
  - Thrombocytopenia [Unknown]
  - Brain death [Fatal]
  - Cerebral haematoma [Unknown]
  - Mental status changes [Unknown]
  - Malignant neoplasm progression [Unknown]
  - Seizure [Unknown]
  - Haemolytic anaemia [Unknown]
